FAERS Safety Report 15245572 (Version 5)
Quarter: 2018Q4

REPORT INFORMATION
  Report Type: Spontaneous
  Country: US (occurrence: US)
  Receive Date: 20180806
  Receipt Date: 20181016
  Transmission Date: 20190204
  Serious: Yes (Hospitalization, Other)
  Sender: FDA-Public Use
  Company Number: US-INCYTE CORPORATION-2018IN007476

PATIENT

DRUGS (2)
  1. JAKAFI [Suspect]
     Active Substance: RUXOLITINIB
     Indication: MYELOFIBROSIS
     Dosage: 15 MG, BID
     Route: 048
     Dates: start: 20180614
  2. JAKAFI [Suspect]
     Active Substance: RUXOLITINIB
     Dosage: 15 MG, BID
     Route: 048
     Dates: start: 20180629

REACTIONS (13)
  - Fluid retention [Recovered/Resolved]
  - Dental caries [Recovered/Resolved]
  - Head injury [Unknown]
  - Dehydration [Unknown]
  - Tooth loss [Recovered/Resolved]
  - Myocardial infarction [Unknown]
  - Gingivitis [Recovered/Resolved]
  - Diastolic dysfunction [Unknown]
  - Oedema genital [Recovered/Resolved]
  - Pulmonary hypertension [Unknown]
  - Loss of consciousness [Unknown]
  - Cardiac failure congestive [Recovering/Resolving]
  - Acute kidney injury [Recovered/Resolved]

NARRATIVE: CASE EVENT DATE: 20180629
